FAERS Safety Report 8565384-1 (Version None)
Quarter: 2012Q3

REPORT INFORMATION
  Report Type: 
  Country: None (occurrence: None)
  Receive Date: 20120724
  Receipt Date: 20120716
  Transmission Date: 20120928
  Serious: Yes (Other)
  Sender: FDA-Public Use
  Company Number: DSA_58511_2012

PATIENT
  Age: 53 Year
  Sex: Male

DRUGS (3)
  1. METHYLPREDNISOLONE [Concomitant]
  2. ACYCLOVIR [Suspect]
     Indication: RETINITIS
     Dosage: DF INTRAVENOUS, DF ORAL
     Route: 042
  3. ACYCLOVIR [Suspect]
     Indication: RETINITIS
     Dosage: DF INTRAVENOUS, DF ORAL
     Route: 042

REACTIONS (5)
  - C-REACTIVE PROTEIN INCREASED [None]
  - ACUTE GENERALISED EXANTHEMATOUS PUSTULOSIS [None]
  - LEUKOCYTOSIS [None]
  - PYREXIA [None]
  - NEUTROPHILIA [None]
